FAERS Safety Report 12514278 (Version 5)
Quarter: 2020Q2

REPORT INFORMATION
  Report Type: Spontaneous
  Country: US (occurrence: US)
  Receive Date: 20160630
  Receipt Date: 20200421
  Transmission Date: 20200713
  Serious: Yes (Death, Hospitalization)
  Sender: FDA-Public Use
  Company Number: US-JNJFOC-20160523195

PATIENT
  Age: 59 Year
  Sex: Female

DRUGS (3)
  1. XARELTO [Suspect]
     Active Substance: RIVAROXABAN
     Indication: PULMONARY EMBOLISM
     Route: 048
     Dates: start: 20150102, end: 20150505
  2. XARELTO [Suspect]
     Active Substance: RIVAROXABAN
     Route: 048
     Dates: start: 201505, end: 20150522
  3. XARELTO [Suspect]
     Active Substance: RIVAROXABAN
     Route: 048
     Dates: end: 20150601

REACTIONS (2)
  - Epistaxis [Unknown]
  - Haemoptysis [Unknown]

NARRATIVE: CASE EVENT DATE: 20150501
